FAERS Safety Report 20423595 (Version 4)
Quarter: 2023Q4

REPORT INFORMATION
  Report Type: Spontaneous
  Country: US (occurrence: US)
  Receive Date: 20220203
  Receipt Date: 20231122
  Transmission Date: 20240110
  Serious: Yes (Hospitalization, Other)
  Sender: FDA-Public Use
  Company Number: US-TEVA-2022-US-2003313

PATIENT
  Age: 65 Year
  Sex: Male

DRUGS (7)
  1. PRIMIDONE [Interacting]
     Active Substance: PRIMIDONE
     Indication: Tremor
     Route: 065
  2. PRIMIDONE [Interacting]
     Active Substance: PRIMIDONE
     Indication: Parkinson^s disease
     Dosage: 500 MILLIGRAM DAILY; 250MG BY MOUTH TWICE DAILY
     Route: 048
  3. APIXABAN [Interacting]
     Active Substance: APIXABAN
     Indication: Deep vein thrombosis
     Route: 065
  4. APIXABAN [Interacting]
     Active Substance: APIXABAN
     Indication: Anticoagulant therapy
     Dosage: 10 MILLIGRAM DAILY; 5MG TWICE A DAY
     Route: 048
  5. FLUCONAZOLE [Suspect]
     Active Substance: FLUCONAZOLE
     Indication: Meningitis cryptococcal
     Dosage: 800 MILLIGRAM DAILY;
     Route: 042
  6. AMPHOTERICIN B [Concomitant]
     Active Substance: AMPHOTERICIN B
     Indication: Meningitis cryptococcal
     Route: 042
  7. FLUCYTOSINE [Concomitant]
     Active Substance: FLUCYTOSINE
     Indication: Meningitis cryptococcal
     Route: 048

REACTIONS (2)
  - Anticoagulation drug level decreased [Recovering/Resolving]
  - Drug interaction [Unknown]
